FAERS Safety Report 20664716 (Version 2)
Quarter: 2025Q1

REPORT INFORMATION
  Report Type: Spontaneous
  Country: CA (occurrence: CA)
  Receive Date: 20220401
  Receipt Date: 20250321
  Transmission Date: 20250408
  Serious: Yes (Other)
  Sender: COVIS PHARMA GMBH
  Company Number: CA-AstraZeneca-2020SF21313

PATIENT
  Sex: Female

DRUGS (10)
  1. ALVESCO [Suspect]
     Active Substance: CICLESONIDE
     Indication: Product used for unknown indication
     Route: 055
  2. ALVESCO [Suspect]
     Active Substance: CICLESONIDE
  3. SPIRIVA [Suspect]
     Active Substance: TIOTROPIUM BROMIDE MONOHYDRATE
     Indication: Product used for unknown indication
     Dosage: 2 DOSAGE FORM, QD
     Route: 065
  4. ALBUTEROL [Suspect]
     Active Substance: ALBUTEROL
     Indication: Product used for unknown indication
     Route: 065
  5. ALBUTEROL [Suspect]
     Active Substance: ALBUTEROL
     Route: 065
  6. FORMOTEROL [Suspect]
     Active Substance: FORMOTEROL
     Indication: Product used for unknown indication
     Dosage: 6 MICROGRAM, BID
  7. FORMOTEROL [Suspect]
     Active Substance: FORMOTEROL
  8. MONTELUKAST [Suspect]
     Active Substance: MONTELUKAST
     Indication: Product used for unknown indication
     Dosage: 100 MILLIGRAM, QD
     Route: 060
  9. MONTELUKAST [Suspect]
     Active Substance: MONTELUKAST
  10. NUCALA [Suspect]
     Active Substance: MEPOLIZUMAB
     Indication: Asthma
     Dosage: 100 MILLIGRAM, QD
     Route: 065

REACTIONS (6)
  - Overdose [Unknown]
  - Dyspnoea [Recovering/Resolving]
  - Mycobacterium avium complex infection [Recovering/Resolving]
  - Obstructive airways disorder [Recovering/Resolving]
  - Pulmonary mass [Recovering/Resolving]
  - Asthma [Recovering/Resolving]
